FAERS Safety Report 14919237 (Version 1)
Quarter: 2018Q2

REPORT INFORMATION
  Report Type: Spontaneous
  Country: US (occurrence: US)
  Receive Date: 20180502
  Receipt Date: 20180502
  Transmission Date: 20180711
  Serious: Yes (Other)
  Sender: FDA-Public Use
  Company Number: None

PATIENT
  Age: 49 Year
  Sex: Female
  Weight: 62.1 kg

DRUGS (9)
  1. GABAPENTIN 300 MG [Suspect]
     Active Substance: GABAPENTIN
     Indication: FIBROMYALGIA
     Dosage: ?          QUANTITY:1 CAPSULE(S);?
     Route: 048
     Dates: start: 20180425, end: 20180502
  2. MAGNESIUM [Concomitant]
     Active Substance: MAGNESIUM
  3. ESTRODIAL [Concomitant]
     Active Substance: ESTRADIOL
  4. TRAMADOL. [Concomitant]
     Active Substance: TRAMADOL
  5. GABAPENTIN 300 MG [Suspect]
     Active Substance: GABAPENTIN
     Indication: SPINAL PAIN
     Dosage: ?          QUANTITY:1 CAPSULE(S);?
     Route: 048
     Dates: start: 20180425, end: 20180502
  6. GABAPENTIN. [Concomitant]
     Active Substance: GABAPENTIN
  7. LORAZAPAM [Concomitant]
     Active Substance: LORAZEPAM
  8. WELLBUTRIN [Concomitant]
     Active Substance: BUPROPION HYDROCHLORIDE
  9. MULTI VITAMIN [Concomitant]
     Active Substance: VITAMINS

REACTIONS (5)
  - Hypotension [None]
  - Dizziness [None]
  - Presyncope [None]
  - Thinking abnormal [None]
  - Asthenia [None]

NARRATIVE: CASE EVENT DATE: 20180501
